FAERS Safety Report 6468847-8 (Version None)
Quarter: 2009Q4

REPORT INFORMATION
  Report Type: 
  Country: None (occurrence: None)
  Receive Date: 20091119
  Receipt Date: 20090824
  Transmission Date: 20100525
  Serious: No
  Sender: FDA-Public Use
  Company Number: WAES 0908USA04109

PATIENT
  Age: 76 Year
  Sex: Male
  Weight: 51.2565 kg

DRUGS (15)
  1. JANUVIA [Suspect]
     Indication: DIABETES MELLITUS
     Dosage: 50 MG/DAILY/PO
     Route: 048
     Dates: start: 20090618, end: 20090717
  2. FLOMAX [Concomitant]
  3. IMDUR [Concomitant]
  4. LANOXIN [Concomitant]
  5. MEVACOR [Concomitant]
  6. NORVASC [Concomitant]
  7. TOPROL-XL [Concomitant]
  8. TRICOR [Concomitant]
  9. ZETIA [Concomitant]
  10. ASPIRIN [Concomitant]
  11. FOLIC ACID [Concomitant]
  12. HYDROXYZINE [Concomitant]
  13. LISINOPRIL [Concomitant]
  14. METFORMIN HCL [Concomitant]
  15. METHOTREXATE [Concomitant]

REACTIONS (4)
  - ABDOMINAL PAIN LOWER [None]
  - DIARRHOEA [None]
  - NAUSEA [None]
  - PALPITATIONS [None]
